FAERS Safety Report 9484907 (Version 1)
Quarter: 2013Q3

REPORT INFORMATION
  Report Type: Spontaneous
  Country: DE (occurrence: DE)
  Receive Date: 20130828
  Receipt Date: 20130828
  Transmission Date: 20140515
  Serious: Yes (Hospitalization, Other)
  Sender: FDA-Public Use
  Company Number: DE-ROXANE LABORATORIES, INC.-2013-RO-01437RO

PATIENT
  Age: 61 Year
  Sex: Male

DRUGS (3)
  1. AZATHIOPRINE [Suspect]
     Indication: COLITIS ULCERATIVE
  2. CYCLOSPORINE [Suspect]
     Indication: COLITIS ULCERATIVE
  3. INFLIXIMAB [Suspect]
     Indication: COLITIS ULCERATIVE

REACTIONS (2)
  - Isosporiasis [Recovered/Resolved]
  - Cytomegalovirus colitis [Recovered/Resolved]
